FAERS Safety Report 10979847 (Version 1)
Quarter: 2015Q2

REPORT INFORMATION
  Report Type: Spontaneous
  Country: US (occurrence: US)
  Receive Date: 20150402
  Receipt Date: 20150402
  Transmission Date: 20150821
  Serious: No
  Sender: FDA-Public Use
  Company Number: US-SA-2014SA074733

PATIENT
  Age: 8 Year
  Sex: Female
  Weight: 27 kg

DRUGS (2)
  1. ESSENTIAL OILS NOS/CAMPHOR [Concomitant]
     Indication: HYPERSENSITIVITY
     Dosage: RUB ON CHEST AND USE IN VAPORISER
     Dates: start: 201406
  2. ALLEGRA [Suspect]
     Active Substance: FEXOFENADINE HYDROCHLORIDE
     Indication: HYPERSENSITIVITY
     Dosage: TAKEN FROM-LAST 3 YEARS
     Route: 048
     Dates: start: 20091029, end: 201404

REACTIONS (1)
  - Dysgeusia [Recovered/Resolved]

NARRATIVE: CASE EVENT DATE: 2014
